FAERS Safety Report 19703531 (Version 2)
Quarter: 2021Q3

REPORT INFORMATION
  Report Type: Spontaneous
  Country: IT (occurrence: IT)
  Receive Date: 20210816
  Receipt Date: 20210924
  Transmission Date: 20211014
  Serious: Yes (Hospitalization, Other)
  Sender: FDA-Public Use
  Company Number: IT-AMGEN-ITASP2021123685

PATIENT

DRUGS (2)
  1. PEGFILGRASTIM [Suspect]
     Active Substance: PEGFILGRASTIM
     Indication: PROPHYLAXIS
     Dosage: 6 MILLIGRAM, SINGLE ADMINISTRATION ON DAY 3
     Route: 058
  2. FILGRASTIM [Suspect]
     Active Substance: FILGRASTIM
     Indication: NEUTROPENIA
     Dosage: 5 MICROGRAM/KILOGRAM, QD FOR 3 DAYS
     Route: 065

REACTIONS (4)
  - Febrile neutropenia [Recovered/Resolved with Sequelae]
  - Infection [Recovering/Resolving]
  - Pyrexia [Unknown]
  - Bone pain [Unknown]
